FAERS Safety Report 8204656-7 (Version None)
Quarter: 2012Q1

REPORT INFORMATION
  Report Type: 
  Country: None (occurrence: None)
  Receive Date: 20120313
  Receipt Date: 20120311
  Transmission Date: 20120608
  Serious: Yes (Other)
  Sender: FDA-Public Use
  Company Number: IL-JNJFOC-20120302455

PATIENT
  Age: 65 Year
  Sex: Male

DRUGS (25)
  1. DOXORUBICIN HCL [Suspect]
     Route: 042
  2. RITUXIMAB [Suspect]
     Route: 065
  3. RITUXIMAB [Suspect]
     Route: 065
  4. VINCRISTINE [Suspect]
     Route: 065
  5. DOXORUBICIN HCL [Suspect]
     Route: 042
  6. RITUXIMAB [Suspect]
     Route: 065
  7. VINCRISTINE [Suspect]
     Indication: DIFFUSE LARGE B-CELL LYMPHOMA
     Route: 065
  8. VINCRISTINE [Suspect]
     Route: 065
  9. VINCRISTINE [Suspect]
     Route: 065
  10. PREDNISONE [Suspect]
     Indication: DIFFUSE LARGE B-CELL LYMPHOMA
     Route: 065
  11. PREDNISONE [Suspect]
     Route: 065
  12. PREDNISONE [Suspect]
     Route: 065
  13. RITUXIMAB [Suspect]
     Indication: DIFFUSE LARGE B-CELL LYMPHOMA
     Route: 065
  14. RITUXIMAB [Suspect]
     Route: 065
  15. CYCLOPHOSPHAMIDE [Suspect]
     Route: 065
  16. DOXORUBICIN HCL [Suspect]
     Indication: DIFFUSE LARGE B-CELL LYMPHOMA
     Route: 042
  17. DOXORUBICIN HCL [Suspect]
     Route: 042
  18. CYCLOPHOSPHAMIDE [Suspect]
     Indication: DIFFUSE LARGE B-CELL LYMPHOMA
     Route: 065
  19. PREDNISONE [Suspect]
     Route: 065
  20. DOXORUBICIN HCL [Suspect]
     Route: 042
  21. CYCLOPHOSPHAMIDE [Suspect]
     Route: 065
  22. CYCLOPHOSPHAMIDE [Suspect]
     Route: 065
  23. CYCLOPHOSPHAMIDE [Suspect]
     Route: 065
  24. VINCRISTINE [Suspect]
     Route: 065
  25. PREDNISONE [Suspect]
     Route: 065

REACTIONS (1)
  - PNEUMOCYSTIS JIROVECI PNEUMONIA [None]
